FAERS Safety Report 20710418 (Version 1)
Quarter: 2022Q2

REPORT INFORMATION
  Report Type: Spontaneous
  Country: CN (occurrence: CN)
  Receive Date: 20220414
  Receipt Date: 20220414
  Transmission Date: 20220721
  Serious: Yes (Other)
  Sender: FDA-Public Use
  Company Number: CN-JNJFOC-20220427220

PATIENT
  Age: 43 Day
  Sex: Female
  Weight: 1.03 kg

DRUGS (3)
  1. CHILDRENS MOTRIN [Suspect]
     Active Substance: IBUPROFEN
     Indication: Patent ductus arteriosus
     Route: 048
     Dates: start: 20220327, end: 20220327
  2. CHILDRENS MOTRIN [Suspect]
     Active Substance: IBUPROFEN
     Route: 048
     Dates: start: 20220328, end: 20220328
  3. CHILDRENS MOTRIN [Suspect]
     Active Substance: IBUPROFEN
     Route: 048
     Dates: start: 20220329, end: 20220329

REACTIONS (1)
  - Oliguria [Recovered/Resolved]

NARRATIVE: CASE EVENT DATE: 20220327
